FAERS Safety Report 8727145 (Version 2)
Quarter: 2015Q2

REPORT INFORMATION
  Report Type: Report from Study
  Country: US (occurrence: US)
  Receive Date: 20120816
  Receipt Date: 20150629
  Transmission Date: 20150821
  Serious: Yes (Other)
  Sender: FDA-Public Use
  Company Number: US-ROCHE-1100937

PATIENT
  Age: 52 Year
  Sex: Male

DRUGS (14)
  1. DOPAMINE [Concomitant]
     Active Substance: DOPAMINE\DOPAMINE HYDROCHLORIDE
     Dosage: 800MG PER 250ML 5% DEXTROSE WATER
     Route: 065
  2. ISORDIL [Concomitant]
     Active Substance: ISOSORBIDE DINITRATE
     Route: 065
  3. ACTIVASE [Suspect]
     Active Substance: ALTEPLASE
     Indication: ACUTE MYOCARDIAL INFARCTION
     Dosage: 15MG BOLUS, THEN 50MG OVER 30MIN, 35MG OVER 60MIN.
     Route: 042
     Dates: start: 19910429
  4. MILK OF MAGNESIA [Concomitant]
     Active Substance: MAGNESIUM HYDROXIDE
  5. OXYGEN. [Concomitant]
     Active Substance: OXYGEN
     Dosage: 4 LITRE/ MIN
     Route: 045
  6. ATROPINE SULFATE. [Concomitant]
     Active Substance: ATROPINE SULFATE
     Dosage: 1 MG/ 10 ML
     Route: 065
  7. OXYGEN. [Concomitant]
     Active Substance: OXYGEN
     Dosage: 2 LITRE/ MIN
     Route: 045
  8. CEPACOL (UNITED STATES) [Concomitant]
  9. CLINORIL [Concomitant]
     Active Substance: SULINDAC
     Route: 065
  10. TYLENOL [Concomitant]
     Active Substance: ACETAMINOPHEN
     Route: 065
  11. ECOTRIN [Concomitant]
     Active Substance: ASPIRIN
     Route: 048
  12. MORPHINE [Concomitant]
     Active Substance: MORPHINE
     Route: 065
  13. DARVOCET-N 100 [Concomitant]
     Active Substance: ACETAMINOPHEN\PROPOXYPHENE NAPSYLATE
     Route: 065
  14. HEPARIN [Concomitant]
     Active Substance: HEPARIN SODIUM

REACTIONS (4)
  - Sinus bradycardia [Unknown]
  - Dyspnoea [Unknown]
  - Ventricular extrasystoles [Unknown]
  - Nausea [Unknown]
